FAERS Safety Report 12683090 (Version 1)
Quarter: 2016Q3

REPORT INFORMATION
  Report Type: Report from Study
  Country: US (occurrence: US)
  Receive Date: 20160825
  Receipt Date: 20160825
  Transmission Date: 20161109
  Serious: Yes (Other)
  Sender: FDA-Public Use
  Company Number: US-ALEXION PHARMACEUTICALS INC-A201606157

PATIENT
  Sex: Male

DRUGS (1)
  1. SOLIRIS [Suspect]
     Active Substance: ECULIZUMAB
     Indication: HAEMOLYTIC URAEMIC SYNDROME
     Dosage: UNK
     Route: 042

REACTIONS (7)
  - Hydronephrosis [Unknown]
  - Salmonellosis [Recovered/Resolved]
  - Viral infection [Recovered/Resolved]
  - Platelet count decreased [Unknown]
  - Vomiting [Unknown]
  - Diarrhoea [Unknown]
  - Hepatitis [Unknown]

NARRATIVE: CASE EVENT DATE: 20160817
